FAERS Safety Report 8528425-3 (Version None)
Quarter: 2012Q3

REPORT INFORMATION
  Report Type: 
  Country: None (occurrence: None)
  Receive Date: 20120722
  Receipt Date: 20120717
  Transmission Date: 20120928
  Serious: No
  Sender: FDA-Public Use
  Company Number: US-009507513-1207USA006018

PATIENT

DRUGS (5)
  1. FUROSEMIDE [Concomitant]
  2. LOSARTAN POTASSIUM [Concomitant]
  3. AMLODIPINE [Concomitant]
  4. CYMBALTA [Concomitant]
  5. JANUVIA [Suspect]
     Indication: DIABETES MELLITUS
     Dosage: 1/2 TABLE, QD
     Route: 048
     Dates: start: 20090101

REACTIONS (2)
  - WRONG TECHNIQUE IN DRUG USAGE PROCESS [None]
  - ORAL DISCOMFORT [None]
